FAERS Safety Report 4352733-3 (Version None)
Quarter: 2004Q2

REPORT INFORMATION
  Report Type: 
  Country: None (occurrence: None)
  Receive Date: 20040504
  Receipt Date: 20040121
  Transmission Date: 20050107
  Serious: Yes (Other)
  Sender: FDA-Public Use
  Company Number: FR-GLAXOSMITHKLINE-B0320853A

PATIENT
  Age: 70 Year
  Sex: Female
  Weight: 88 kg

DRUGS (6)
  1. AVANDIA [Suspect]
     Indication: DIABETES MELLITUS NON-INSULIN-DEPENDENT
     Dosage: 8MG PER DAY
     Route: 048
     Dates: start: 20031022, end: 20040308
  2. AMAREL [Concomitant]
     Indication: DIABETES MELLITUS NON-INSULIN-DEPENDENT
     Dosage: 4MG PER DAY
     Route: 048
     Dates: start: 20031022
  3. ZOCOR [Concomitant]
     Indication: HYPERCHOLESTEROLAEMIA
     Dosage: 20MG PER DAY
     Route: 048
     Dates: start: 20031215, end: 20040112
  4. LASIX [Concomitant]
     Indication: HYPERTENSION
     Dosage: 40MG PER DAY
     Route: 048
  5. DIFFU K [Concomitant]
     Dosage: 1UNIT PER DAY
     Route: 048
  6. NPH INSULIN [Concomitant]
     Indication: DIABETES MELLITUS
     Route: 058
     Dates: start: 20000101, end: 20031022

REACTIONS (7)
  - ALPHA-2 MACROGLOBULIN INCREASED [None]
  - ANAEMIA [None]
  - BLOOD ALBUMIN DECREASED [None]
  - INFLAMMATION [None]
  - OEDEMA PERIPHERAL [None]
  - RENAL FAILURE [None]
  - VIRAL TRACHEITIS [None]
